FAERS Safety Report 9434336 (Version 1)
Quarter: 2013Q3

REPORT INFORMATION
  Report Type: Spontaneous
  Country: US (occurrence: None)
  Receive Date: 20130731
  Receipt Date: 20130731
  Transmission Date: 20140515
  Serious: Yes (Death)
  Sender: FDA-Public Use
  Company Number: None

PATIENT
  Age: 86 Year
  Sex: Male
  Weight: 75 kg

DRUGS (2)
  1. ABIRATERONE [Suspect]
     Indication: PROSTATE CANCER METASTATIC
  2. PREDNISONE [Suspect]
     Dosage: 5MG PO BID
     Route: 048

REACTIONS (2)
  - Small intestinal obstruction [None]
  - Prostate cancer [None]
